FAERS Safety Report 12284951 (Version 2)
Quarter: 2016Q2

REPORT INFORMATION
  Report Type: Report from Study
  Country: None (occurrence: CA)
  Receive Date: 20160420
  Receipt Date: 20160519
  Transmission Date: 20160815
  Serious: Yes (Hospitalization)
  Sender: FDA-Public Use
  Company Number: CA-BIOVITRUM-2016CA0269

PATIENT
  Age: 61 Year
  Sex: Female

DRUGS (1)
  1. KINERET [Suspect]
     Active Substance: ANAKINRA
     Indication: AUTOINFLAMMATORY DISEASE
     Route: 058
     Dates: start: 20130912

REACTIONS (1)
  - Leg amputation [Unknown]

NARRATIVE: CASE EVENT DATE: 20160109
